FAERS Safety Report 8905231 (Version 1)
Quarter: 2012Q4

REPORT INFORMATION
  Report Type: 
  Country: US (occurrence: US)
  Receive Date: 20121109
  Receipt Date: 20121109
  Transmission Date: 20130627
  Serious: No
  Sender: FDA-Public Use
  Company Number: US-PFIZER INC-2012275558

PATIENT
  Age: 71 Year
  Sex: Female

DRUGS (6)
  1. SERTRALINE HCL [Suspect]
     Indication: DEPRESSION
     Dosage: 50 mg, 1x/day
  2. SERTRALINE HCL [Suspect]
     Indication: ANXIETY
  3. LEVOTHYROXINE [Concomitant]
     Dosage: 100 ug, UNK
  4. ASA [Concomitant]
     Dosage: 325 mg, UNK
  5. VITAMIN D3 [Concomitant]
     Dosage: UNK
  6. FLAXSEED OIL [Concomitant]

REACTIONS (5)
  - Drug ineffective [Unknown]
  - Depressed mood [Unknown]
  - Crying [Unknown]
  - Panic attack [Unknown]
  - Quality of life decreased [Unknown]
